FAERS Safety Report 5095424-6 (Version None)
Quarter: 2006Q3

REPORT INFORMATION
  Report Type: 
  Country: None (occurrence: None)
  Receive Date: 20060901
  Receipt Date: 20060821
  Transmission Date: 20061208
  Serious: Yes (Hospitalization)
  Sender: FDA-Public Use
  Company Number: US-ROCHE-460591

PATIENT
  Age: 70 Year
  Sex: Female
  Weight: 52.6 kg

DRUGS (3)
  1. BONIVA [Suspect]
     Indication: OSTEOPOROSIS
     Dosage: 150 MG MONTHLY.
     Route: 048
     Dates: start: 20060625, end: 20060725
  2. FIORINAL [Concomitant]
     Route: 048
  3. LYRICA [Concomitant]
     Indication: NECK PAIN
     Route: 048

REACTIONS (3)
  - ABDOMINAL PAIN [None]
  - CHEST PAIN [None]
  - DYSPNOEA [None]
